FAERS Safety Report 20032427 (Version 1)
Quarter: 2021Q4

REPORT INFORMATION
  Report Type: Spontaneous
  Country: US (occurrence: None)
  Receive Date: 20211103
  Receipt Date: 20211103
  Transmission Date: 20220303
  Serious: Yes (Other)
  Sender: FDA-Public Use
  Company Number: US-Invatech-000162

PATIENT
  Sex: Female

DRUGS (3)
  1. LABETALOL HYDROCHLORIDE [Suspect]
     Active Substance: LABETALOL HYDROCHLORIDE
     Indication: Blood pressure measurement
     Dosage: 150 MG TID FOR APPROX 4 MONTHS
  2. CLONIDINE [Concomitant]
     Active Substance: CLONIDINE
     Indication: Blood pressure measurement
     Dosage: 0.1 MG 1-3X/DAY FOR APPROX 4 MONTHS
  3. LABETALOL HYDROCHLORIDE [Suspect]
     Active Substance: LABETALOL HYDROCHLORIDE
     Indication: Blood pressure measurement
     Dosage: 100 MG

REACTIONS (1)
  - Hypertension [Recovered/Resolved]
